FAERS Safety Report 18618312 (Version 1)
Quarter: 2020Q4

REPORT INFORMATION
  Report Type: Spontaneous
  Country: US (occurrence: US)
  Receive Date: 20201215
  Receipt Date: 20201215
  Transmission Date: 20210114
  Serious: No
  Sender: FDA-Public Use
  Company Number: US-BRISTOL-MYERS SQUIBB COMPANY-BMS-2020-106111

PATIENT
  Sex: Female

DRUGS (1)
  1. KENALOG-10 [Suspect]
     Active Substance: TRIAMCINOLONE ACETONIDE
     Indication: KELOID SCAR
     Dosage: 2 (NO UNIT), 4 WEEKS APART
     Route: 065
     Dates: start: 202006

REACTIONS (1)
  - Contusion [Unknown]
